FAERS Safety Report 18140302 (Version 1)
Quarter: 2020Q3

REPORT INFORMATION
  Report Type: Spontaneous
  Country: None (occurrence: ID)
  Receive Date: 20200812
  Receipt Date: 20200812
  Transmission Date: 20201103
  Serious: Yes (Hospitalization, Other)
  Sender: FDA-Public Use
  Company Number: ID-STRIDES ARCOLAB LIMITED-2020SP009103

PATIENT
  Age: 32 Year
  Sex: Female

DRUGS (3)
  1. LORATADINE. [Suspect]
     Active Substance: LORATADINE
     Indication: FOOD ALLERGY
     Dosage: 10 MILLIGRAM, QD
     Route: 048
  2. METHYLPREDNISOLONE. [Suspect]
     Active Substance: METHYLPREDNISOLONE
     Indication: FOOD ALLERGY
     Dosage: 4 MILLIGRAM, BID
     Route: 048
  3. CETIRIZINE [Suspect]
     Active Substance: CETIRIZINE HYDROCHLORIDE
     Indication: FOOD ALLERGY
     Dosage: 10 MILLIGRAM, QD
     Route: 048

REACTIONS (7)
  - Skin lesion [Recovered/Resolved]
  - Condition aggravated [Recovered/Resolved]
  - Pruritus [Recovered/Resolved]
  - Parakeratosis [Recovered/Resolved]
  - Off label use [Unknown]
  - Drug eruption [Recovered/Resolved]
  - Chest discomfort [Recovered/Resolved]
